FAERS Safety Report 26003722 (Version 1)
Quarter: 2025Q4

REPORT INFORMATION
  Report Type: Spontaneous
  Country: CN (occurrence: CN)
  Receive Date: 20251106
  Receipt Date: 20251106
  Transmission Date: 20260117
  Serious: Yes (Life-Threatening, Hospitalization)
  Sender: Steriscience PTE
  Company Number: CN-STERISCIENCE B.V.-2025-ST-001601

PATIENT
  Age: 83 Year
  Sex: Male

DRUGS (26)
  1. MEROPENEM [Suspect]
     Active Substance: MEROPENEM
     Indication: Pneumonia
     Dosage: 1 GRAM, Q6H, ON DAYS 36-45
     Route: 065
  2. MEROPENEM [Suspect]
     Active Substance: MEROPENEM
     Dosage: 1 GRAM, Q6H, ON DAYS 164-172
     Route: 065
  3. CEFOPERAZONE SODIUM\SULBACTAM SODIUM [Suspect]
     Active Substance: CEFOPERAZONE SODIUM\SULBACTAM SODIUM
     Indication: Pneumonia
     Dosage: 3 GRAM, Q8H, ON DAYS 129-141
     Route: 042
  4. CIPROFLOXACIN [Suspect]
     Active Substance: CIPROFLOXACIN
     Indication: Pneumonia
     Dosage: 2 GRAM, QD,ON DAYS 14-25
     Route: 042
  5. CIPROFLOXACIN [Suspect]
     Active Substance: CIPROFLOXACIN
     Dosage: 2 GRAM, QD, ON DAYS 48-54
     Route: 042
  6. CIPROFLOXACIN [Suspect]
     Active Substance: CIPROFLOXACIN
     Dosage: 2 GRAM, QD, ON DAYS 104-116
     Route: 042
  7. AMIKACIN [Suspect]
     Active Substance: AMIKACIN
     Indication: Pneumonia
     Dosage: UNK
     Route: 042
  8. ISEPAMICIN [Suspect]
     Active Substance: ISEPAMICIN
     Indication: Pneumonia
     Dosage: 0.2 GRAM, BID, ON DAYS 19-29
     Route: 042
  9. ISEPAMICIN [Suspect]
     Active Substance: ISEPAMICIN
     Dosage: 0.2 GRAM, BID, ON DAYS 48-61
     Route: 042
  10. ISEPAMICIN [Suspect]
     Active Substance: ISEPAMICIN
     Dosage: 0.2 GRAM, BID, ON DAYS 91-104
     Route: 042
  11. MINOCYCLINE [Suspect]
     Active Substance: MINOCYCLINE HYDROCHLORIDE
     Indication: Pneumonia
     Dosage: 0.1 GRAM, BID, ON DAYS 20-22
     Route: 042
  12. MINOCYCLINE [Suspect]
     Active Substance: MINOCYCLINE HYDROCHLORIDE
     Dosage: 0.1 GRAM, BID, ON DAYS 25-32
     Route: 042
  13. AVIBACTAM SODIUM\CEFTAZIDIME [Suspect]
     Active Substance: AVIBACTAM SODIUM\CEFTAZIDIME
     Indication: Pneumonia
     Dosage: 2.5 GRAM, Q8H, ON DAYS 6-14
     Route: 042
  14. AVIBACTAM SODIUM\CEFTAZIDIME [Suspect]
     Active Substance: AVIBACTAM SODIUM\CEFTAZIDIME
     Dosage: 2.5 GRAM, Q8H, ON DAYS 34-44
     Route: 042
  15. AVIBACTAM SODIUM\CEFTAZIDIME [Suspect]
     Active Substance: AVIBACTAM SODIUM\CEFTAZIDIME
     Dosage: 2.5 GRAM, Q8H, ON DAYS 104-117
     Route: 042
  16. COLISTIN [Suspect]
     Active Substance: COLISTIN
     Indication: Pneumonia
     Dosage: 50 MILLIGRAM, BID, ON DAY 5
     Route: 042
  17. COLISTIN [Suspect]
     Active Substance: COLISTIN
     Indication: Pseudomonas infection
     Dosage: 50 MILLIGRAM, BID, ON DAYS 20-28
     Route: 042
  18. COLISTIN [Suspect]
     Active Substance: COLISTIN
     Dosage: 50 MILLIGRAM, BID, ON DAYS 62-65
     Route: 042
  19. PIPERACILLIN SODIUM\TAZOBACTAM SODIUM [Suspect]
     Active Substance: PIPERACILLIN SODIUM\TAZOBACTAM SODIUM
     Indication: Pneumonia
     Dosage: 4.5 GRAM, Q8H, ON DAYS 27-36
     Route: 042
  20. PIPERACILLIN SODIUM\TAZOBACTAM SODIUM [Suspect]
     Active Substance: PIPERACILLIN SODIUM\TAZOBACTAM SODIUM
     Dosage: 4.5 GRAM, Q8H, ON DAYS 55-66
     Route: 042
  21. PIPERACILLIN SODIUM\TAZOBACTAM SODIUM [Suspect]
     Active Substance: PIPERACILLIN SODIUM\TAZOBACTAM SODIUM
     Dosage: 4.5 GRAM, Q8H, ON DAYS 118-129
     Route: 042
  22. FLUCONAZOLE [Suspect]
     Active Substance: FLUCONAZOLE
     Indication: Pneumonia
     Dosage: 0.2 GRAM, QD, ON DAYS 10-25
     Route: 042
  23. FLUCONAZOLE [Suspect]
     Active Substance: FLUCONAZOLE
     Dosage: 0.2 GRAM, QD, ON DAYS 133-141
     Route: 042
  24. TOBRAMYCIN [Suspect]
     Active Substance: TOBRAMYCIN
     Indication: Pneumonia
     Dosage: UNK
     Route: 042
  25. TOBRAMYCIN [Suspect]
     Active Substance: TOBRAMYCIN
     Indication: Pseudomonas infection
  26. CEFTRIAXONE [Suspect]
     Active Substance: CEFTRIAXONE
     Indication: Evidence based treatment
     Dosage: UNK
     Route: 042

REACTIONS (1)
  - Multiple-drug resistance [Unknown]
